FAERS Safety Report 5006156-4 (Version None)
Quarter: 2006Q1

REPORT INFORMATION
  Report Type: 
  Country: None (occurrence: None)
  Receive Date: 20060328
  Receipt Date: 20051221
  Transmission Date: 20060701
  Serious: Yes (Hospitalization)
  Sender: FDA-Public Use
  Company Number: K200501627

PATIENT
  Age: 71 Year
  Sex: Male

DRUGS (4)
  1. ALTACE [Suspect]
     Indication: CAROTID ARTERY INSUFFICIENCY
     Dosage: SEE IMAGE
     Route: 048
     Dates: start: 20051101, end: 20051201
  2. ALTACE [Suspect]
     Indication: CAROTID ARTERY INSUFFICIENCY
     Dosage: SEE IMAGE
     Route: 048
     Dates: start: 20030101
  3. ALTACE [Suspect]
     Indication: CAROTID ARTERY INSUFFICIENCY
     Dosage: SEE IMAGE
     Route: 048
     Dates: start: 20051220
  4. PREVACID [Concomitant]

REACTIONS (8)
  - ASTHENIA [None]
  - BACTERIAL INFECTION [None]
  - BLOOD PRESSURE DECREASED [None]
  - DEHYDRATION [None]
  - DIARRHOEA [None]
  - DIZZINESS [None]
  - HAEMATOCHEZIA [None]
  - SYNCOPE [None]
